FAERS Safety Report 19599890 (Version 3)
Quarter: 2021Q3

REPORT INFORMATION
  Report Type: Report from Study
  Country: GT (occurrence: GT)
  Receive Date: 20210722
  Receipt Date: 20210903
  Transmission Date: 20211014
  Serious: Yes (Other)
  Sender: FDA-Public Use
  Company Number: NVSC2021GT164068

PATIENT
  Age: 74 Year
  Sex: Male
  Weight: 79.37 kg

DRUGS (3)
  1. EXFORGE [Suspect]
     Active Substance: AMLODIPINE BESYLATE\VALSARTAN
     Indication: HYPERTENSION
     Dosage: 0.5 DF, Q24H (HALF OF 320/10)
     Route: 065
  2. EXFORGE HCT [Suspect]
     Active Substance: AMLODIPINE BESYLATE\HYDROCHLOROTHIAZIDE\VALSARTAN
     Indication: HYPERTENSION
     Dosage: UNK
     Route: 065
  3. METFORMIN [Concomitant]
     Active Substance: METFORMIN HYDROCHLORIDE
     Indication: TYPE 2 DIABETES MELLITUS
     Dosage: 500 MG, IN THE MORNING AND AT NIGHT
     Route: 065

REACTIONS (8)
  - Incorrect dose administered [Unknown]
  - Nephrolithiasis [Unknown]
  - Cystitis [Unknown]
  - Urinary retention [Unknown]
  - Blood creatinine increased [Unknown]
  - Hepatic steatosis [Unknown]
  - Benign prostatic hyperplasia [Unknown]
  - Diabetic nephropathy [Unknown]

NARRATIVE: CASE EVENT DATE: 20210510
